FAERS Safety Report 11719753 (Version 4)
Quarter: 2025Q3

REPORT INFORMATION
  Report Type: Spontaneous
  Country: US (occurrence: US)
  Receive Date: 20151110
  Receipt Date: 20250820
  Transmission Date: 20251021
  Serious: Yes (Life-Threatening, Hospitalization, Other)
  Sender: SANOFI AVENTIS
  Company Number: US-SA-2015SA179642

PATIENT
  Age: 61 Year
  Sex: Male

DRUGS (6)
  1. DOCETAXEL [Suspect]
     Active Substance: DOCETAXEL
     Indication: Glottis carcinoma
  2. DOCETAXEL [Suspect]
     Active Substance: DOCETAXEL
     Indication: Metastases to lung
  3. CISPLATIN [Concomitant]
     Active Substance: CISPLATIN
     Indication: Glottis carcinoma
  4. CISPLATIN [Concomitant]
     Active Substance: CISPLATIN
     Indication: Metastases to lung
  5. FLUOROURACIL [Concomitant]
     Active Substance: FLUOROURACIL
     Indication: Glottis carcinoma
  6. FLUOROURACIL [Concomitant]
     Active Substance: FLUOROURACIL
     Indication: Metastases to lung

REACTIONS (5)
  - Pulmonary toxicity [Recovered/Resolved]
  - Tachycardia [Recovered/Resolved]
  - Respiratory alkalosis [Recovered/Resolved]
  - Lung infiltration [Recovered/Resolved]
  - Hypoxia [Recovered/Resolved]
